FAERS Safety Report 5400968-0 (Version None)
Quarter: 2007Q3

REPORT INFORMATION
  Report Type: 
  Country: None (occurrence: None)
  Receive Date: 20070730
  Receipt Date: 20070719
  Transmission Date: 20080115
  Serious: Yes (Hospitalization, Other)
  Sender: FDA-Public Use
  Company Number: US-AMGEN-STX235286

PATIENT
  Sex: Female

DRUGS (3)
  1. ENBREL [Suspect]
     Indication: RHEUMATOID ARTHRITIS
     Route: 058
     Dates: start: 20061229
  2. METHOTREXATE SODIUM [Concomitant]
     Route: 065
     Dates: start: 19970101
  3. REMICADE [Concomitant]
     Dates: start: 20070201, end: 20070401

REACTIONS (3)
  - DRUG INEFFECTIVE [None]
  - NO THERAPEUTIC RESPONSE [None]
  - RHEUMATOID ARTHRITIS [None]
